FAERS Safety Report 7076755-7 (Version None)
Quarter: 2010Q4

REPORT INFORMATION
  Report Type: 
  Country: None (occurrence: None)
  Receive Date: 20101029
  Receipt Date: 20101029
  Transmission Date: 20110411
  Serious: No
  Sender: FDA-Public Use
  Company Number: None

PATIENT
  Sex: Male
  Weight: 72.5755 kg

DRUGS (2)
  1. OXYCONTIN [Suspect]
     Indication: ANKYLOSING SPONDYLITIS
     Dosage: 1 80MG PILL 3X DAILY 3X PER DAY ORALLY
     Route: 048
  2. OXYCONTIN [Suspect]
     Indication: SACROILIITIS
     Dosage: 1 80MG PILL 3X DAILY 3X PER DAY ORALLY
     Route: 048

REACTIONS (3)
  - DRUG INEFFECTIVE [None]
  - NAUSEA [None]
  - PRODUCT FORMULATION ISSUE [None]
